FAERS Safety Report 24685364 (Version 1)
Quarter: 2024Q4

REPORT INFORMATION
  Report Type: Spontaneous
  Country: US (occurrence: US)
  Receive Date: 20241202
  Receipt Date: 20241202
  Transmission Date: 20250115
  Serious: Yes (Hospitalization)
  Sender: BRISTOL-MYERS SQUIBB COMPANY
  Company Number: US-BRISTOL-MYERS SQUIBB COMPANY-2024-183283

PATIENT
  Age: 62 Year
  Sex: Female
  Weight: 68.49 kg

DRUGS (2)
  1. POMALYST [Suspect]
     Active Substance: POMALIDOMIDE
     Indication: Plasma cell leukaemia
     Dosage: DAILY ON DAYS 1-21 OF A 28 DAY CYCLE
     Route: 048
  2. XPOVIO [Concomitant]
     Active Substance: SELINEXOR
     Indication: Plasma cell leukaemia
     Dosage: WEEKLY
     Route: 048

REACTIONS (1)
  - Neoplasm [Recovering/Resolving]
